FAERS Safety Report 25523647 (Version 1)
Quarter: 2025Q3

REPORT INFORMATION
  Report Type: Spontaneous
  Country: US (occurrence: US)
  Receive Date: 20250707
  Receipt Date: 20250707
  Transmission Date: 20251020
  Serious: No
  Sender: BAYER HEALTHCARE LLC
  Company Number: US-BAYER-2025A088088

PATIENT
  Age: 72 Year
  Sex: Female

DRUGS (3)
  1. MIRALAX [Suspect]
     Active Substance: POLYETHYLENE GLYCOL 3350
     Indication: Constipation
     Route: 048
     Dates: end: 20250625
  2. NORCO [Concomitant]
     Active Substance: ACETAMINOPHEN\HYDROCODONE BITARTRATE
  3. SENNA [Concomitant]
     Active Substance: SENNOSIDES

REACTIONS (4)
  - Diarrhoea [Unknown]
  - Product prescribing issue [None]
  - Product prescribing error [None]
  - Labelled drug-drug interaction issue [Unknown]
